FAERS Safety Report 12809836 (Version 15)
Quarter: 2017Q4

REPORT INFORMATION
  Report Type: Report from Study
  Country: PL (occurrence: PL)
  Receive Date: 20161005
  Receipt Date: 20171023
  Transmission Date: 20180320
  Serious: Yes (Death, Other)
  Sender: FDA-Public Use
  Company Number: PL-B.I. PHARMACEUTICALS,INC./RIDGEFIELD-2016-BI-61608BI

PATIENT
  Age: 28 Year
  Sex: Female
  Weight: 76.5 kg

DRUGS (3)
  1. SUVARDIO [Concomitant]
     Active Substance: ROSUVASTATIN CALCIUM
     Indication: HYPERLIPIDAEMIA
     Route: 048
     Dates: start: 20151016
  2. LOGEST [Concomitant]
     Active Substance: ETHINYL ESTRADIOL\GESTODENE
     Indication: ORAL CONTRACEPTION
     Route: 048
     Dates: start: 201104
  3. EMPAGLIFLOZIN [Suspect]
     Active Substance: EMPAGLIFLOZIN
     Indication: TYPE 1 DIABETES MELLITUS
     Route: 048
     Dates: start: 20160601, end: 20160919

REACTIONS (3)
  - Respiratory arrest [Fatal]
  - Diabetic ketoacidosis [Unknown]
  - Cardiac arrest [Fatal]

NARRATIVE: CASE EVENT DATE: 20160918
